FAERS Safety Report 19610886 (Version 2)
Quarter: 2021Q3

REPORT INFORMATION
  Report Type: Report from Study
  Country: DE (occurrence: DE)
  Receive Date: 20210726
  Receipt Date: 20210813
  Transmission Date: 20211014
  Serious: Yes (Other)
  Sender: FDA-Public Use
  Company Number: DE-TAKEDA-2021TUS036732

PATIENT
  Age: 61 Year
  Sex: Female

DRUGS (19)
  1. TEDUGLUTIDE [Suspect]
     Active Substance: TEDUGLUTIDE
     Indication: SHORT-BOWEL SYNDROME
     Dosage: 3 MILLIGRAM, 1/WEEK
     Route: 065
     Dates: start: 20201112, end: 20201208
  2. TEDUGLUTIDE [Suspect]
     Active Substance: TEDUGLUTIDE
     Dosage: 2 MILLIGRAM, 1/WEEK
     Route: 065
     Dates: start: 20201209, end: 20201215
  3. SELENASE [Concomitant]
     Indication: SELENIUM DEFICIENCY
     Dosage: 100 MICROGRAM, QOD
     Route: 048
     Dates: start: 20210608
  4. PREDNISOLON [Concomitant]
     Active Substance: PREDNISOLONE
     Indication: RHEUMATIC DISORDER
     Dosage: 5.00 MILLIGRAM, QD
     Route: 048
     Dates: start: 20210119
  5. TEDUGLUTIDE [Suspect]
     Active Substance: TEDUGLUTIDE
     Indication: SHORT-BOWEL SYNDROME
     Dosage: 3 MILLIGRAM, 1/WEEK
     Route: 065
     Dates: start: 20201112, end: 20201208
  6. TEDUGLUTIDE [Suspect]
     Active Substance: TEDUGLUTIDE
     Dosage: 2.4 MILLIGRAM, 1/WEEK
     Route: 065
     Dates: start: 20201216
  7. TEDUGLUTIDE [Suspect]
     Active Substance: TEDUGLUTIDE
     Indication: SHORT-BOWEL SYNDROME
     Dosage: 3 MILLIGRAM, 1/WEEK
     Route: 065
     Dates: start: 20201112, end: 20201208
  8. TEDUGLUTIDE [Suspect]
     Active Substance: TEDUGLUTIDE
     Dosage: 2 MILLIGRAM, 1/WEEK
     Route: 065
     Dates: start: 20201209, end: 20201215
  9. TEDUGLUTIDE [Suspect]
     Active Substance: TEDUGLUTIDE
     Dosage: 2 MILLIGRAM, 1/WEEK
     Route: 065
     Dates: start: 20201209, end: 20201215
  10. NOVAMINSULFON [Concomitant]
     Active Substance: METAMIZOLE
     Indication: RHEUMATIC DISORDER
     Dosage: 500 MILLIGRAM, 2?2?2
     Route: 048
     Dates: start: 20201221, end: 202101
  11. TEDUGLUTIDE [Suspect]
     Active Substance: TEDUGLUTIDE
     Indication: SHORT-BOWEL SYNDROME
     Dosage: 3 MILLIGRAM, 1/WEEK
     Route: 065
     Dates: start: 20201112, end: 20201208
  12. TEDUGLUTIDE [Suspect]
     Active Substance: TEDUGLUTIDE
     Dosage: 2 MILLIGRAM, 1/WEEK
     Route: 065
     Dates: start: 20201209, end: 20201215
  13. TEDUGLUTIDE [Suspect]
     Active Substance: TEDUGLUTIDE
     Dosage: 2.4 MILLIGRAM, 1/WEEK
     Route: 065
     Dates: start: 20201216
  14. TEDUGLUTIDE [Suspect]
     Active Substance: TEDUGLUTIDE
     Dosage: 2.4 MILLIGRAM, 1/WEEK
     Route: 065
     Dates: start: 20201216
  15. TEDUGLUTIDE [Suspect]
     Active Substance: TEDUGLUTIDE
     Dosage: 2.4 MILLIGRAM, 1/WEEK
     Route: 065
     Dates: start: 20201216
  16. NOVAMINSULFON [Concomitant]
     Active Substance: METAMIZOLE
     Indication: CONDITION AGGRAVATED
  17. IBUFLAM [Concomitant]
     Indication: RHEUMATIC DISORDER
     Dosage: 600 MILLIGRAM, QID
     Route: 048
     Dates: start: 20201221, end: 202101
  18. LEFAX [Concomitant]
     Active Substance: DIMETHICONE
     Indication: ABDOMINAL DISTENSION
     Dosage: 2 DOSAGE FORM
     Route: 060
     Dates: start: 202103
  19. IBUFLAM [Concomitant]
     Indication: CONDITION AGGRAVATED

REACTIONS (5)
  - Gamma-glutamyltransferase increased [Not Recovered/Not Resolved]
  - Faecaloma [Not Recovered/Not Resolved]
  - Night sweats [Not Recovered/Not Resolved]
  - Vomiting [Unknown]
  - Selenium deficiency [Recovered/Resolved]

NARRATIVE: CASE EVENT DATE: 20210510
